FAERS Safety Report 21980288 (Version 1)
Quarter: 2023Q1

REPORT INFORMATION
  Report Type: Spontaneous
  Country: SK (occurrence: SK)
  Receive Date: 20230210
  Receipt Date: 20230210
  Transmission Date: 20230418
  Serious: Yes (Death, Hospitalization, Other)
  Sender: FDA-Public Use
  Company Number: SK-CELLTRION INC.-2023SK002679

PATIENT

DRUGS (5)
  1. RITUXIMAB [Suspect]
     Active Substance: RITUXIMAB
     Indication: Epstein-Barr virus associated lymphoma
  2. PREDNISONE [Suspect]
     Active Substance: PREDNISONE
     Indication: Epstein-Barr virus associated lymphoma
  3. VINCRISTINE [Suspect]
     Active Substance: VINCRISTINE
     Indication: Epstein-Barr virus associated lymphoma
  4. DOXORUBICIN [Suspect]
     Active Substance: DOXORUBICIN
     Indication: Epstein-Barr virus associated lymphoma
  5. CYCLOPHOSPHAMIDE [Suspect]
     Active Substance: CYCLOPHOSPHAMIDE
     Indication: Epstein-Barr virus associated lymphoma

REACTIONS (10)
  - Disease progression [Fatal]
  - Ischaemic stroke [Unknown]
  - Altered state of consciousness [Recovered/Resolved]
  - Febrile neutropenia [Recovering/Resolving]
  - Aspergillus infection [Unknown]
  - Cytomegalovirus infection [Recovering/Resolving]
  - Pneumonia [Unknown]
  - Pneumocystis jirovecii infection [Unknown]
  - Encephalitis viral [Not Recovered/Not Resolved]
  - Epstein-Barr virus infection [Unknown]
